FAERS Safety Report 19899864 (Version 1)
Quarter: 2021Q3

REPORT INFORMATION
  Report Type: Spontaneous
  Country: IT (occurrence: IT)
  Receive Date: 20210930
  Receipt Date: 20210930
  Transmission Date: 20211014
  Serious: Yes (Other)
  Sender: FDA-Public Use
  Company Number: IT-BAUSCH-BL-2021-032724

PATIENT
  Age: 81 Year
  Sex: Female

DRUGS (1)
  1. NORMIX 200 MG [Suspect]
     Active Substance: RIFAXIMIN
     Indication: DIVERTICULUM INTESTINAL
     Route: 048
     Dates: start: 20210101

REACTIONS (2)
  - Diarrhoea [Recovered/Resolved]
  - Abdominal pain [Recovered/Resolved]

NARRATIVE: CASE EVENT DATE: 20210715
